FAERS Safety Report 17794925 (Version 1)
Quarter: 2020Q2

REPORT INFORMATION
  Report Type: Spontaneous
  Country: US (occurrence: US)
  Receive Date: 20200516
  Receipt Date: 20200516
  Transmission Date: 20200714
  Serious: Yes (Other)
  Sender: FDA-Public Use
  Company Number: US-SUN PHARMACEUTICAL INDUSTRIES LTD-2020R1-246721

PATIENT
  Age: 66 Year
  Sex: Male

DRUGS (2)
  1. LIPOSOMAL DOXORUBICIN [Suspect]
     Active Substance: DOXORUBICIN HYDROCHLORIDE
     Indication: LYMPHOMA
     Dosage: 40 MILLIGRAM/SQ. METER ((102 MG AT EACH INFUSION)
     Route: 065
  2. RITUXIMAB. [Suspect]
     Active Substance: RITUXIMAB
     Indication: LYMPHOMA
     Dosage: 375 MG/M2, (1,000 MG AT EACH INFUSION)
     Route: 065

REACTIONS (1)
  - Therapy partial responder [Unknown]
